FAERS Safety Report 10246788 (Version 4)
Quarter: 2014Q3

REPORT INFORMATION
  Report Type: Report from Study
  Country: JP (occurrence: JP)
  Receive Date: 20140619
  Receipt Date: 20140812
  Transmission Date: 20150326
  Serious: Yes (Hospitalization)
  Sender: FDA-Public Use
  Company Number: PHHO2014JP008746

PATIENT
  Age: 81 Year
  Sex: Female
  Weight: 46 kg

DRUGS (2)
  1. AMN107 [Suspect]
     Active Substance: NILOTINIB
     Indication: GASTROINTESTINAL STROMAL TUMOUR
     Dosage: 400 MG, DAILY
     Route: 048
     Dates: start: 20091027, end: 20140616
  2. AMN107 [Suspect]
     Active Substance: NILOTINIB
     Dosage: 400 MG, DAILY
     Route: 048
     Dates: start: 20140806

REACTIONS (1)
  - Ileus [Recovering/Resolving]

NARRATIVE: CASE EVENT DATE: 20140613
